FAERS Safety Report 18034792 (Version 1)
Quarter: 2020Q3

REPORT INFORMATION
  Report Type: Spontaneous
  Country: CA (occurrence: CA)
  Receive Date: 20200716
  Receipt Date: 20200716
  Transmission Date: 20201103
  Serious: Yes (Life-Threatening, Hospitalization)
  Sender: FDA-Public Use
  Company Number: NVSC2020CA200420

PATIENT
  Sex: Male

DRUGS (2)
  1. ROSUVASTATIN. [Suspect]
     Active Substance: ROSUVASTATIN
     Indication: PERCUTANEOUS CORONARY INTERVENTION
     Dosage: 40 MG
     Route: 065
  2. ROSUVASTATIN. [Suspect]
     Active Substance: ROSUVASTATIN
     Indication: MYOCARDIAL INFARCTION

REACTIONS (4)
  - Pain [Unknown]
  - Acute kidney injury [Unknown]
  - Blood creatine phosphokinase increased [Unknown]
  - Hepatic enzyme increased [Unknown]
